FAERS Safety Report 6910688-9 (Version None)
Quarter: 2010Q3

REPORT INFORMATION
  Report Type: 
  Country: None (occurrence: None)
  Receive Date: 20100806
  Receipt Date: 20100729
  Transmission Date: 20110219
  Serious: Yes (Hospitalization)
  Sender: FDA-Public Use
  Company Number: US-ROCHE-718316

PATIENT
  Sex: Female
  Weight: 68.9 kg

DRUGS (7)
  1. PEGINTERFERON ALFA-2A [Suspect]
     Indication: HEPATITIS C
     Route: 058
     Dates: start: 20100419, end: 20100712
  2. RIBAVIRIN [Suspect]
     Indication: HEPATITIS C
     Route: 048
     Dates: start: 20100419, end: 20100716
  3. BLINDED FILIBUVIR [Suspect]
     Indication: HEPATITIS C
     Dosage: DOSE BLINDED, FREQUENCY: DAILY
     Route: 048
     Dates: start: 20100419, end: 20100716
  4. ERGOCALCIFEROL [Concomitant]
     Indication: PROPHYLAXIS
     Dosage: DRUG NAME: VITAMIN D
     Dates: start: 20091201
  5. MULTIVITAMIN NOS [Concomitant]
     Indication: PROPHYLAXIS
     Dosage: DRUG NAME: MULTIVITAMINS, PLAIN
     Dates: start: 20091201
  6. MILK THISTLE [Concomitant]
     Dosage: INDICATION: FOR LIVER HEALTH
     Dates: start: 20091201
  7. ACETAMINOPHEN [Concomitant]
     Dates: start: 20100419

REACTIONS (1)
  - PERITONITIS BACTERIAL [None]
